FAERS Safety Report 6949015 (Version 6)
Quarter: 2016Q4

REPORT INFORMATION
  Report Type: Spontaneous
  Country: IT (occurrence: IT)
  Receive Date: 20090323
  Receipt Date: 20161011
  Transmission Date: 20170207
  Serious: Yes (Hospitalization)
  Sender: FDA-Public Use
  Company Number: IT-B.I. PHARMACEUTICALS,INC./RIDGEFIELD-2009-IT-00009IT

PATIENT
  Age: 68 Year
  Sex: Male

DRUGS (3)
  1. SINEMET [Concomitant]
     Active Substance: CARBIDOPA\LEVODOPA
     Dosage: 100 MG+25 MG
     Route: 065
     Dates: start: 20080626
  2. SINEMET [Concomitant]
     Active Substance: CARBIDOPA\LEVODOPA
     Indication: PARKINSON^S DISEASE
     Route: 065
     Dates: start: 2004
  3. MIRAPEXIN [Suspect]
     Active Substance: PRAMIPEXOLE
     Indication: PARKINSON^S DISEASE
     Route: 065
     Dates: start: 2004, end: 2008

REACTIONS (12)
  - Gambling disorder [Not Recovered/Not Resolved]
  - Cholecystitis chronic [Unknown]
  - Depression [Not Recovered/Not Resolved]
  - Sexual dysfunction [Unknown]
  - Mental disorder [Unknown]
  - Feeling guilty [Not Recovered/Not Resolved]
  - Bipolar I disorder [Not Recovered/Not Resolved]
  - Economic problem [Unknown]
  - Social problem [Unknown]
  - Tooth loss [Unknown]
  - Dyspepsia [Unknown]
  - General physical health deterioration [Unknown]

NARRATIVE: CASE EVENT DATE: 20080418
